FAERS Safety Report 21861930 (Version 3)
Quarter: 2023Q1

REPORT INFORMATION
  Report Type: Spontaneous
  Country: US (occurrence: US)
  Receive Date: 20230113
  Receipt Date: 20230202
  Transmission Date: 20230417
  Serious: Yes (Life-Threatening, Hospitalization, Other)
  Sender: FDA-Public Use
  Company Number: US-009507513-2301USA004288

PATIENT
  Age: 58 Year
  Sex: Female
  Weight: 83.447 kg

DRUGS (6)
  1. KEYTRUDA [Suspect]
     Active Substance: PEMBROLIZUMAB
     Indication: Endometrial cancer
     Dosage: 200 MILLIGRAM, Q3W
     Route: 042
     Dates: start: 20221101, end: 20221213
  2. LENVATINIB MESYLATE [Suspect]
     Active Substance: LENVATINIB MESYLATE
     Indication: Endometrial cancer
     Dosage: 14 MILLIGRAM, DAILY (QD)
     Route: 048
     Dates: start: 20221101, end: 20221213
  3. LENVATINIB MESYLATE [Suspect]
     Active Substance: LENVATINIB MESYLATE
     Dosage: UNK
     Route: 048
     Dates: start: 20221101, end: 20221103
  4. LENVATINIB MESYLATE [Suspect]
     Active Substance: LENVATINIB MESYLATE
     Dosage: 8 MILLIGRAM
     Route: 048
     Dates: start: 20221122, end: 20221222
  5. LORAZEPAM [Concomitant]
     Active Substance: LORAZEPAM
     Indication: Anxiety
     Dosage: AS NEEDED
     Route: 048
     Dates: start: 20211227
  6. POTASSIUM [Concomitant]
     Active Substance: POTASSIUM

REACTIONS (5)
  - Aortic dissection [Not Recovered/Not Resolved]
  - Pulmonary oedema [Not Recovered/Not Resolved]
  - Blood pressure increased [Not Recovered/Not Resolved]
  - Heart valve incompetence [Not Recovered/Not Resolved]
  - Colitis [Recovered/Resolved]

NARRATIVE: CASE EVENT DATE: 20221103
